FAERS Safety Report 8437119-4 (Version None)
Quarter: 2012Q2

REPORT INFORMATION
  Report Type: 
  Country: None (occurrence: None)
  Receive Date: 20120614
  Receipt Date: 20120402
  Transmission Date: 20120825
  Serious: No
  Sender: FDA-Public Use
  Company Number: US-AMGEN-USASP2012020741

PATIENT
  Age: 55 Year
  Sex: Female

DRUGS (4)
  1. TOPIRAMATE [Concomitant]
     Dosage: UNK
  2. TREXIMET [Concomitant]
     Dosage: UNK
  3. PROLIA [Suspect]
     Indication: OSTEOPOROSIS POSTMENOPAUSAL
     Dosage: 60 MG, Q6MO
     Dates: start: 20110101
  4. VAGIFEM [Concomitant]
     Dosage: UNK

REACTIONS (1)
  - NAUSEA [None]
